FAERS Safety Report 7251308-6 (Version None)
Quarter: 2011Q1

REPORT INFORMATION
  Report Type: 
  Country: None (occurrence: None)
  Receive Date: 20110119
  Receipt Date: 20110111
  Transmission Date: 20110831
  Serious: Yes (Hospitalization, Other)
  Sender: FDA-Public Use
  Company Number: 022352

PATIENT
  Sex: Female
  Weight: 99.3377 kg

DRUGS (3)
  1. TOPAMAX [Concomitant]
  2. LEVOTHYROXINE [Concomitant]
  3. LACOSAMIDE [Suspect]
     Indication: EPILEPSY
     Dosage: (200 MG BID ORAL)
     Route: 048
     Dates: start: 20081029

REACTIONS (9)
  - LUMBAR VERTEBRAL FRACTURE [None]
  - BLOOD PRESSURE INCREASED [None]
  - EXCORIATION [None]
  - CERVICAL VERTEBRAL FRACTURE [None]
  - TRAUMATIC LUNG INJURY [None]
  - CONVULSION [None]
  - RIB FRACTURE [None]
  - ROAD TRAFFIC ACCIDENT [None]
  - CONCUSSION [None]
